FAERS Safety Report 18846830 (Version 1)
Quarter: 2021Q1

REPORT INFORMATION
  Report Type: Report from Study
  Country: US (occurrence: US)
  Receive Date: 20210203
  Receipt Date: 20210203
  Transmission Date: 20210419
  Serious: No
  Sender: FDA-Public Use
  Company Number: US-EXELIXIS-CABO-20028446

PATIENT
  Age: 68 Year
  Sex: Female

DRUGS (3)
  1. CABOMETYX [Suspect]
     Active Substance: CABOZANTINIB S-MALATE
     Dosage: 60 MG, QD
  2. CABOMETYX [Suspect]
     Active Substance: CABOZANTINIB S-MALATE
     Indication: RENAL CANCER
     Dosage: 60 MG, QD
     Dates: start: 20200205
  3. TUMS [Suspect]
     Active Substance: CALCIUM CARBONATE
     Indication: DYSPEPSIA
     Dosage: UNK

REACTIONS (19)
  - Weight increased [Unknown]
  - Fatigue [Unknown]
  - Diarrhoea [Unknown]
  - Blood magnesium decreased [Unknown]
  - Constipation [Recovered/Resolved]
  - Memory impairment [Unknown]
  - Nausea [Unknown]
  - Dyspepsia [Not Recovered/Not Resolved]
  - Blood pressure increased [Unknown]
  - Product dose omission issue [Unknown]
  - Blister [Unknown]
  - Vertigo [Unknown]
  - Tremor [Unknown]
  - Blood glucose fluctuation [Unknown]
  - Alopecia [Unknown]
  - Arthralgia [Unknown]
  - Blood pressure decreased [Unknown]
  - Tooth disorder [Unknown]
  - Vomiting [Unknown]

NARRATIVE: CASE EVENT DATE: 202002
